FAERS Safety Report 15313667 (Version 2)
Quarter: 2018Q3

REPORT INFORMATION
  Report Type: Spontaneous
  Country: US (occurrence: US)
  Receive Date: 20180824
  Receipt Date: 20180831
  Transmission Date: 20181010
  Serious: Yes (Hospitalization, Other)
  Sender: FDA-Public Use
  Company Number: US-DRREDDYS-USA/USA/18/0103324

PATIENT
  Age: 62 Year
  Sex: Female

DRUGS (1)
  1. GEMCITABINE [Suspect]
     Active Substance: GEMCITABINE\GEMCITABINE HYDROCHLORIDE
     Indication: MIXED ADENONEUROENDOCRINE CARCINOMA
     Dosage: 2 DOSE TAKEN
     Route: 065

REACTIONS (2)
  - Post thrombotic syndrome [Recovering/Resolving]
  - Toxicity to various agents [Recovering/Resolving]
